FAERS Safety Report 6058787-0 (Version None)
Quarter: 2009Q1

REPORT INFORMATION
  Report Type: 
  Country: None (occurrence: None)
  Receive Date: 20090128
  Receipt Date: 20090128
  Transmission Date: 20090719
  Serious: Yes (Disabling, Other)
  Sender: FDA-Public Use
  Company Number: None

PATIENT
  Age: 74 Year
  Sex: Female
  Weight: 74.8435 kg

DRUGS (1)
  1. SINGULAIR [Suspect]
     Indication: ASTHMA
     Dosage: 1 TABLET ONCE A DAY PO
     Route: 048
     Dates: start: 20081001, end: 20081010

REACTIONS (5)
  - AMNESIA [None]
  - DRY MOUTH [None]
  - JAUNDICE [None]
  - SPEECH DISORDER [None]
  - THINKING ABNORMAL [None]
